FAERS Safety Report 7258394-8 (Version None)
Quarter: 2011Q1

REPORT INFORMATION
  Report Type: 
  Country: None (occurrence: None)
  Receive Date: 20110129
  Receipt Date: 20100709
  Transmission Date: 20110831
  Serious: No
  Sender: FDA-Public Use
  Company Number: US-ABBOTT-10P-163-0656324-00

PATIENT
  Age: 34 Year
  Sex: Female

DRUGS (6)
  1. ADVAIR [Concomitant]
     Indication: ASTHMA
  2. HUMIRA [Suspect]
     Indication: CROHN'S DISEASE
     Dates: start: 20100708
  3. INBUTEROL [Concomitant]
     Indication: ASTHMA
     Route: 055
  4. BENTYL [Concomitant]
     Indication: CROHN'S DISEASE
  5. BENTYL [Concomitant]
     Indication: ABDOMINAL PAIN UPPER
  6. PRILOSEC [Concomitant]
     Indication: ULCER

REACTIONS (5)
  - INJECTION SITE URTICARIA [None]
  - INJECTION SITE PAPULE [None]
  - INJECTION SITE OEDEMA [None]
  - INJECTION SITE HAEMORRHAGE [None]
  - INJECTION SITE HAEMATOMA [None]
